FAERS Safety Report 8306691-7 (Version None)
Quarter: 2012Q2

REPORT INFORMATION
  Report Type: 
  Country: None (occurrence: None)
  Receive Date: 20120420
  Receipt Date: 20120406
  Transmission Date: 20120825
  Serious: Yes (Death, Hospitalization)
  Sender: FDA-Public Use
  Company Number: ALK_02434_2012

PATIENT
  Age: 21 Year
  Sex: Male

DRUGS (1)
  1. VIVITROL [Suspect]
     Indication: PRODUCT USED FOR UNKNOWN INDICATION
     Dosage: (INTRAMUSCULAR)
     Route: 030

REACTIONS (2)
  - THERMAL BURN [None]
  - LUNG DISORDER [None]
